FAERS Safety Report 4514798-5 (Version None)
Quarter: 2004Q4

REPORT INFORMATION
  Report Type: 
  Country: None (occurrence: None)
  Receive Date: 20041129
  Receipt Date: 20041129
  Transmission Date: 20050328
  Serious: No
  Sender: FDA-Public Use
  Company Number: None

PATIENT
  Age: 66 Year
  Sex: Female
  Weight: 81.1939 kg

DRUGS (2)
  1. ENBREL [Suspect]
     Indication: RHEUMATOID ARTHRITIS
     Dosage: 25 MG SQ TWICE A WEEK
     Route: 058
     Dates: start: 19991229, end: 20041123
  2. ARAVA [Suspect]
     Dosage: 20 MG QD
     Dates: start: 19981022, end: 20071123

REACTIONS (1)
  - TUBERCULOSIS [None]
